FAERS Safety Report 8687694 (Version 3)
Quarter: 2012Q4

REPORT INFORMATION
  Report Type: 
  Country: DE (occurrence: DE)
  Receive Date: 20120727
  Receipt Date: 20120904
  Transmission Date: 20130627
  Serious: Yes (Life-Threatening, Hospitalization, Disabling)
  Sender: FDA-Public Use
  Company Number: DE-B.I. PHARMACEUTICALS,INC./RIDGEFIELD-2012-DE-01702DE

PATIENT
  Age: 72 Year
  Sex: Female
  Weight: 59 kg

DRUGS (3)
  1. PRADAXA [Suspect]
     Indication: INTERNATIONAL NORMALISED RATIO
     Dosage: 300 mg
     Dates: start: 20120428, end: 20120505
  2. PRADAXA [Suspect]
     Dosage: 220 mg
     Route: 048
     Dates: start: 20120507, end: 20120513
  3. MEDICATION FOR HYPOTHYREOSIS [Concomitant]

REACTIONS (7)
  - Gastrointestinal haemorrhage [Unknown]
  - Ischaemic stroke [Unknown]
  - Monoplegia [Unknown]
  - Diverticulum intestinal [Unknown]
  - Haemorrhagic anaemia [Unknown]
  - Nausea [Unknown]
  - Malaise [Unknown]
